FAERS Safety Report 21955911 (Version 7)
Quarter: 2023Q2

REPORT INFORMATION
  Report Type: Report from Study
  Country: US (occurrence: US)
  Receive Date: 20230206
  Receipt Date: 20230609
  Transmission Date: 20230722
  Serious: Yes (Hospitalization)
  Sender: FDA-Public Use
  Company Number: US-ARGENX-2022-ARGX-US001825

PATIENT
  Age: 76 Year
  Sex: Male

DRUGS (2)
  1. VYVGART [Suspect]
     Active Substance: EFGARTIGIMOD ALFA-FCAB
     Indication: Myasthenia gravis
     Dosage: UNK
     Route: 042
     Dates: start: 20220909
  2. CYMBALTA [Concomitant]
     Active Substance: DULOXETINE HYDROCHLORIDE
     Indication: Headache

REACTIONS (13)
  - Disease progression [Not Recovered/Not Resolved]
  - Medication error [Unknown]
  - Infusion site bruising [Unknown]
  - Infusion site mass [Unknown]
  - Therapeutic response decreased [Unknown]
  - Muscular weakness [Unknown]
  - Aphonia [Unknown]
  - Inappropriate schedule of product administration [Unknown]
  - Nasopharyngitis [Unknown]
  - Cough [Unknown]
  - Oropharyngeal pain [Unknown]
  - Sinus headache [Unknown]
  - Viral infection [Unknown]

NARRATIVE: CASE EVENT DATE: 20220909
